FAERS Safety Report 24705259 (Version 1)
Quarter: 2024Q4

REPORT INFORMATION
  Report Type: Spontaneous
  Country: US (occurrence: US)
  Receive Date: 20241206
  Receipt Date: 20241206
  Transmission Date: 20250114
  Serious: No
  Sender: ALVOGEN
  Company Number: US-ALVOGEN-2024094533

PATIENT
  Age: 80 Year
  Sex: Female

DRUGS (1)
  1. LEVOTHYROXINE [Suspect]
     Active Substance: LEVOTHYROXINE
     Indication: Product used for unknown indication

REACTIONS (4)
  - Feeling cold [Recovering/Resolving]
  - Joint swelling [Recovering/Resolving]
  - Blood glucose decreased [Recovering/Resolving]
  - Alopecia [Recovering/Resolving]
